FAERS Safety Report 7951828-2 (Version None)
Quarter: 2011Q4

REPORT INFORMATION
  Report Type: 
  Country: None (occurrence: None)
  Receive Date: 20111201
  Receipt Date: 20111125
  Transmission Date: 20120403
  Serious: Yes (Hospitalization)
  Sender: FDA-Public Use
  Company Number: IT-PFIZER INC-2011284035

PATIENT
  Age: 48 Year
  Sex: Female

DRUGS (8)
  1. MACROGOL [Concomitant]
     Dosage: 17.5 G, 2X/DAY
  2. FENTANYL CITRATE [Concomitant]
     Dosage: 25 MCG/H EVERY 72 HOURS
     Route: 062
  3. AMILORIDE HCL AND HYDROCHLOROTHIAZIDE [Concomitant]
     Dosage: 1 DF, 1X/DAY
     Route: 048
  4. RANITIDINE [Concomitant]
     Dosage: 150 MG, EVERY 12 HOURS
     Dates: start: 20110101
  5. LEVETIRACETAM [Concomitant]
     Dosage: 500 MG, EVERY 12 HOURS
     Route: 048
     Dates: start: 20111030
  6. CRIZOTINIB [Suspect]
     Indication: LUNG ADENOCARCINOMA METASTATIC
     Dosage: 200 MG, 2X/DAY (EVERY 12 HOURS)
     Route: 048
     Dates: start: 20110105
  7. CALCIUM CARBONATE [Concomitant]
     Dosage: 1000 MG, UNK
     Route: 048
  8. COLECALCIFEROL [Concomitant]
     Dosage: 1 DF,  EVERY 2 WEEKS

REACTIONS (9)
  - THROMBOCYTOPENIA [None]
  - HYPOALBUMINAEMIA [None]
  - CONSTIPATION [None]
  - HAEMOPTYSIS [None]
  - ALANINE AMINOTRANSFERASE INCREASED [None]
  - ASTHENIA [None]
  - LEUKOPENIA [None]
  - HYPOFIBRINOGENAEMIA [None]
  - OEDEMA PERIPHERAL [None]
